FAERS Safety Report 5054646-0 (Version None)
Quarter: 2006Q2

REPORT INFORMATION
  Report Type: 
  Country: None (occurrence: None)
  Receive Date: 20060614
  Receipt Date: 20060124
  Transmission Date: 20061013
  Serious: No
  Sender: FDA-Public Use
  Company Number: US200601004242

PATIENT
  Age: 37 Year
  Sex: Male

DRUGS (1)
  1. CIALIS [Suspect]
     Indication: ERECTILE DYSFUNCTION
     Dosage: 10  MG
     Dates: start: 20060122

REACTIONS (4)
  - ABNORMAL SENSATION IN EYE [None]
  - EYE IRRITATION [None]
  - HEADACHE [None]
  - NASAL CONGESTION [None]
